FAERS Safety Report 10967065 (Version 2)
Quarter: 2015Q3

REPORT INFORMATION
  Report Type: Spontaneous
  Country: US (occurrence: US)
  Receive Date: 20150330
  Receipt Date: 20150723
  Transmission Date: 20151125
  Serious: Yes (Hospitalization)
  Sender: FDA-Public Use
  Company Number: US-ASTRAZENECA-2015SE25910

PATIENT
  Age: 14 Month
  Sex: Female
  Weight: 9.5 kg

DRUGS (4)
  1. ALBUTEROL SULFATE. [Concomitant]
     Active Substance: ALBUTEROL SULFATE
     Dosage: 1 AMP PRN
     Route: 055
  2. SYNAGIS [Suspect]
     Active Substance: PALIVIZUMAB
     Route: 030
     Dates: start: 201411
  3. NIZATIDINE. [Concomitant]
     Active Substance: NIZATIDINE
     Route: 048
  4. ACETAMINOPHEN-CODEINE [Concomitant]
     Active Substance: ACETAMINOPHEN\CODEINE PHOSPHATE
     Route: 048

REACTIONS (5)
  - Viral infection [Recovered/Resolved]
  - Ear infection [Unknown]
  - Secretion discharge [Recovered/Resolved]
  - Injection site swelling [Recovered/Resolved]
  - Pyrexia [Unknown]

NARRATIVE: CASE EVENT DATE: 201502
